FAERS Safety Report 6779442-5 (Version None)
Quarter: 2010Q2

REPORT INFORMATION
  Report Type: 
  Country: None (occurrence: None)
  Receive Date: 20100618
  Receipt Date: 20100609
  Transmission Date: 20101027
  Serious: Yes (Hospitalization)
  Sender: FDA-Public Use
  Company Number: FR-PFIZER INC-2010071978

PATIENT
  Age: 60 Year
  Sex: Female

DRUGS (3)
  1. TRIFLUCAN [Suspect]
     Indication: CANDIDA TEST POSITIVE
     Dosage: 400 MG, 1X/DAY
     Route: 048
     Dates: end: 20081212
  2. PHENYTOIN [Suspect]
     Indication: EPILEPSY
     Dosage: UNK
     Dates: start: 20081212
  3. FORTUM [Suspect]
     Indication: ENDOCARDITIS
     Dosage: 4 G, 1X/DAY
     Dates: start: 20081030, end: 20081212

REACTIONS (6)
  - DEPRESSED LEVEL OF CONSCIOUSNESS [None]
  - DIZZINESS [None]
  - ENCEPHALOPATHY [None]
  - OVERDOSE [None]
  - SOMNOLENCE [None]
  - TREMOR [None]
